FAERS Safety Report 4306715-8 (Version None)
Quarter: 2004Q1

REPORT INFORMATION
  Report Type: 
  Country: None (occurrence: None)
  Receive Date: 20040225
  Receipt Date: 20031118
  Transmission Date: 20041129
  Serious: No
  Sender: FDA-Public Use
  Company Number: US-BRISTOL-MYERS SQUIBB COMPANY-12458683

PATIENT
  Age: 59 Year
  Sex: Female
  Weight: 93 kg

DRUGS (2)
  1. EXCEDRIN (MIGRAINE) [Suspect]
     Indication: PAIN
     Dosage: 1 TO 2 TIMES DAILY
     Route: 048
  2. ZOLOFT [Suspect]
     Dates: start: 20031001

REACTIONS (1)
  - PAIN [None]
